FAERS Safety Report 21308167 (Version 2)
Quarter: 2022Q4

REPORT INFORMATION
  Report Type: Spontaneous
  Country: DE (occurrence: DE)
  Receive Date: 20220908
  Receipt Date: 20221029
  Transmission Date: 20230113
  Serious: Yes (Death)
  Sender: FDA-Public Use
  Company Number: DE-TEVA-2022-DE-2069134

PATIENT
  Age: 71 Year
  Sex: Female

DRUGS (1)
  1. AMOXICILLIN [Suspect]
     Active Substance: AMOXICILLIN
     Indication: Infection
     Route: 048
     Dates: end: 2016

REACTIONS (6)
  - Shock [Fatal]
  - Coma [Fatal]
  - Dyspnoea [Fatal]
  - Cyanosis [Fatal]
  - Panic disorder [Fatal]
  - Hypotension [Fatal]

NARRATIVE: CASE EVENT DATE: 20160101
